FAERS Safety Report 12248996 (Version 7)
Quarter: 2016Q4

REPORT INFORMATION
  Report Type: Spontaneous
  Country: US (occurrence: US)
  Receive Date: 20160408
  Receipt Date: 20161227
  Transmission Date: 20170207
  Serious: No
  Sender: FDA-Public Use
  Company Number: US-PFIZER INC-2016185695

PATIENT
  Age: 67 Year
  Sex: Female

DRUGS (3)
  1. TESSALON [Suspect]
     Active Substance: BENZONATATE
     Indication: COUGH
     Dosage: 100 MG, AS NEEDED (2 DAILY)
     Dates: start: 2000
  2. PHENERGAN DM [Concomitant]
     Active Substance: DEXTROMETHORPHAN HYDROBROMIDE\PROMETHAZINE HYDROCHLORIDE
     Indication: COUGH
     Dosage: UNK, AS NEEDED
  3. TESSALON [Suspect]
     Active Substance: BENZONATATE
     Indication: ASTHMA
     Dosage: 100 MG, 3X/DAY

REACTIONS (1)
  - Malaise [Unknown]
